FAERS Safety Report 4507168-7 (Version None)
Quarter: 2004Q4

REPORT INFORMATION
  Report Type: 
  Country: None (occurrence: None)
  Receive Date: 20041122
  Receipt Date: 20041117
  Transmission Date: 20050328
  Serious: Yes (Life-Threatening)
  Sender: FDA-Public Use
  Company Number: US-MERCK-0411USA03001

PATIENT
  Age: 51 Year
  Sex: Male

DRUGS (1)
  1. VIOXX [Suspect]
     Indication: LIMB INJURY
     Route: 048
     Dates: start: 20030801, end: 20030901

REACTIONS (4)
  - DYSPNOEA [None]
  - FATIGUE [None]
  - HEART RATE IRREGULAR [None]
  - OVERDOSE [None]
